FAERS Safety Report 11937119 (Version 1)
Quarter: 2016Q1

REPORT INFORMATION
  Report Type: Spontaneous
  Country: US (occurrence: US)
  Receive Date: 20160121
  Receipt Date: 20160121
  Transmission Date: 20160526
  Serious: Yes (Hospitalization)
  Sender: FDA-Public Use
  Company Number: US-TARO-2016TAR00030

PATIENT
  Age: 27 Year
  Sex: Male
  Weight: 81.63 kg

DRUGS (10)
  1. KEVEYIS [Suspect]
     Active Substance: DICHLORPHENAMIDE
     Dosage: 75 MG, DAILY
     Route: 048
  2. KEVEYIS [Suspect]
     Active Substance: DICHLORPHENAMIDE
     Dosage: 25 MG, DAILY (FOR A WEEK)
     Route: 048
     Dates: start: 2015, end: 2015
  3. KEVEYIS [Suspect]
     Active Substance: DICHLORPHENAMIDE
     Dosage: 62.5 MG, DAILY
     Route: 048
     Dates: start: 2015
  4. LORTAB [Concomitant]
     Active Substance: ACETAMINOPHEN\HYDROCODONE BITARTRATE
     Dosage: UNK
     Dates: start: 2012
  5. POTASSIUM CHLORIDE. [Concomitant]
     Active Substance: POTASSIUM CHLORIDE
  6. HYDROCODONE [Concomitant]
     Active Substance: HYDROCODONE
     Dosage: UNK
     Dates: start: 2012
  7. KEVEYIS [Suspect]
     Active Substance: DICHLORPHENAMIDE
     Indication: PARALYSIS
     Dosage: 50 MG, 2X/DAY
     Route: 048
     Dates: start: 2015, end: 2015
  8. KEVEYIS [Suspect]
     Active Substance: DICHLORPHENAMIDE
     Dosage: 37.5 MG, DAILY
     Route: 048
     Dates: start: 2015
  9. DIAZEPAM. [Concomitant]
     Active Substance: DIAZEPAM
     Dosage: UNK
     Dates: start: 2012
  10. CHLOROQUINE. [Concomitant]
     Active Substance: CHLOROQUINE

REACTIONS (1)
  - Bronchitis [Recovering/Resolving]

NARRATIVE: CASE EVENT DATE: 201601
